FAERS Safety Report 15607715 (Version 1)
Quarter: 2018Q4

REPORT INFORMATION
  Report Type: Spontaneous
  Country: US (occurrence: US)
  Receive Date: 20181107
  Receipt Date: 20181107
  Transmission Date: 20190205
  Serious: No
  Sender: FDA-Public Use
  Company Number: None

PATIENT
  Age: 70 Year
  Sex: Female

DRUGS (1)
  1. MYCOPHENOLATE MOFETIL 500MG TABLET [Suspect]
     Active Substance: MYCOPHENOLATE MOFETIL
     Route: 048
     Dates: start: 20180817

REACTIONS (6)
  - Product dose omission [None]
  - Sluggishness [None]
  - Influenza like illness [None]
  - Loss of personal independence in daily activities [None]
  - Malaise [None]
  - Tremor [None]

NARRATIVE: CASE EVENT DATE: 20181105
